FAERS Safety Report 9692589 (Version 2)
Quarter: 2013Q4

REPORT INFORMATION
  Report Type: Spontaneous
  Country: FR (occurrence: FR)
  Receive Date: 20131118
  Receipt Date: 20131210
  Transmission Date: 20140711
  Serious: Yes (Death, Life-Threatening, Hospitalization)
  Sender: FDA-Public Use
  Company Number: FR-JNJFOC-20131104500

PATIENT
  Age: 59 Year
  Sex: Female

DRUGS (5)
  1. RISPERDAL [Suspect]
     Indication: PSYCHOTIC DISORDER
     Route: 048
     Dates: end: 20131018
  2. LYRICA [Suspect]
     Indication: PRODUCT USED FOR UNKNOWN INDICATION
     Dosage: 2 DOSES 75 MG IN THE MORNING AND EVENING
     Route: 048
     Dates: start: 2012, end: 20131018
  3. OXYNORM [Concomitant]
     Route: 048
     Dates: end: 20131018
  4. SERESTA [Concomitant]
     Route: 048
     Dates: end: 20131018
  5. OXYCONTIN [Concomitant]
     Route: 048
     Dates: end: 20131018

REACTIONS (2)
  - Cardiac arrest [Fatal]
  - Electrocardiogram QT prolonged [Fatal]
